FAERS Safety Report 4713053-8 (Version None)
Quarter: 2005Q3

REPORT INFORMATION
  Report Type: 
  Country: None (occurrence: None)
  Receive Date: 20050711
  Receipt Date: 20050706
  Transmission Date: 20060218
  Serious: Yes (Other)
  Sender: FDA-Public Use
  Company Number: NLWYE800606JUL05

PATIENT
  Age: 56 Year
  Sex: Male

DRUGS (3)
  1. EFFEXOR [Suspect]
     Indication: DEPRESSION
     Dosage: 150 MG 1X PER 1 DAY ORAL
     Route: 048
     Dates: start: 20030901, end: 20040601
  2. ZOLOFT [Suspect]
     Indication: DEPRESSION
     Dosage: 100 MG 2X PER 1 DAY ORAL
     Route: 048
     Dates: start: 20040601, end: 20050601
  3. IMOVANE (ZOPICLONE) [Concomitant]

REACTIONS (1)
  - OPTIC ATROPHY [None]
